FAERS Safety Report 15691454 (Version 1)
Quarter: 2018Q4

REPORT INFORMATION
  Report Type: Spontaneous
  Country: JP (occurrence: JP)
  Receive Date: 20181205
  Receipt Date: 20181205
  Transmission Date: 20190205
  Serious: Yes (Death)
  Sender: FDA-Public Use
  Company Number: JP-NAPPMUNDI-GBR-2018-0062164

PATIENT
  Age: 64 Year
  Sex: Male

DRUGS (3)
  1. OXYCONTIN [Suspect]
     Active Substance: OXYCODONE HYDROCHLORIDE
     Indication: CANCER PAIN
     Dosage: 10 MG, DAILY
     Route: 065
     Dates: start: 201802, end: 201806
  2. MIRTAZAPINE. [Concomitant]
     Active Substance: MIRTAZAPINE
     Indication: CANCER PAIN
  3. GABAPENTIN. [Concomitant]
     Active Substance: GABAPENTIN
     Indication: CANCER PAIN

REACTIONS (2)
  - Constipation [Recovering/Resolving]
  - Malignant neoplasm of unknown primary site [Fatal]

NARRATIVE: CASE EVENT DATE: 201802
